FAERS Safety Report 5400554-2 (Version None)
Quarter: 2007Q3

REPORT INFORMATION
  Report Type: 
  Country: None (occurrence: None)
  Receive Date: 20070725
  Receipt Date: 20070709
  Transmission Date: 20080115
  Serious: Yes (Hospitalization)
  Sender: FDA-Public Use
  Company Number: CIP07001047

PATIENT
  Age: 67 Year
  Sex: Female

DRUGS (10)
  1. RISEDRONATE SODIUM [Suspect]
     Indication: OSTEOPOROSIS
     Dosage: 2.5 MG DAILY, ORAL
     Route: 048
     Dates: start: 20010827, end: 20070301
  2. RISEDRONATE SODIUM [Suspect]
     Indication: OSTEOPOROSIS
     Dosage: 2.5 MG DAILY, ORAL
     Route: 048
     Dates: start: 20070501
  3. BLOPRESS                  (CANDESARTAN CILEXETIL) [Suspect]
     Indication: HYPERTENSION
     Dosage: 8 MG, DAILY, ORAL
     Route: 048
     Dates: start: 20010827, end: 20070301
  4. BLOPRESS                  (CANDESARTAN CILEXETIL) [Suspect]
     Indication: HYPERTENSION
     Dosage: 8 MG, DAILY, ORAL
     Route: 048
     Dates: start: 20070501
  5. LIPITOR [Suspect]
     Indication: HYPERLIPIDAEMIA
     Dosage: 10 MG, DAILY, ORAL
     Route: 048
     Dates: start: 20010827, end: 20070301
  6. LIPITOR [Suspect]
     Indication: HYPERLIPIDAEMIA
     Dosage: 10 MG, DAILY, ORAL
     Route: 048
     Dates: start: 20070501
  7. STOGAR       (LAFUTIDINE) [Suspect]
     Indication: GASTRITIS
     Dosage: 10 MG, ORAL
     Route: 048
     Dates: start: 20010827, end: 20070301
  8. STOGAR       (LAFUTIDINE) [Suspect]
     Indication: GASTRITIS
     Dosage: 10 MG, ORAL
     Route: 048
     Dates: start: 20070501
  9. ALFAROL        (ALFACALCIDOL) [Suspect]
     Indication: OSTEOPOROSIS
     Dosage: 1 UG, DAILY
     Dates: start: 20010827
  10. ALFAROL        (ALFACALCIDOL) [Suspect]
     Indication: OSTEOPOROSIS
     Dosage: 1 UG, DAILY
     Dates: start: 20070501

REACTIONS (7)
  - AUTOIMMUNE HEPATITIS [None]
  - BASOPHIL PERCENTAGE DECREASED [None]
  - HAEMATOCRIT DECREASED [None]
  - HAEMOGLOBIN DECREASED [None]
  - HEPATIC FUNCTION ABNORMAL [None]
  - MONOCYTE PERCENTAGE INCREASED [None]
  - RED BLOOD CELL COUNT DECREASED [None]
